FAERS Safety Report 5499460-7 (Version None)
Quarter: 2007Q4

REPORT INFORMATION
  Report Type: 
  Country: None (occurrence: None)
  Receive Date: 20071026
  Receipt Date: 20071024
  Transmission Date: 20080405
  Serious: Yes (Hospitalization)
  Sender: FDA-Public Use
  Company Number: FR-BRISTOL-MYERS SQUIBB COMPANY-13888425

PATIENT
  Age: 51 Year
  Sex: Male

DRUGS (1)
  1. ELISOR TABS [Suspect]
     Route: 048
     Dates: start: 20060201

REACTIONS (3)
  - GENITAL ULCERATION [None]
  - MOUTH ULCERATION [None]
  - PEMPHIGUS [None]
